FAERS Safety Report 7480850-8 (Version None)
Quarter: 2011Q2

REPORT INFORMATION
  Report Type: 
  Country: None (occurrence: None)
  Receive Date: 20110506
  Receipt Date: 20110427
  Transmission Date: 20111010
  Serious: Yes (Other)
  Sender: FDA-Public Use
  Company Number: CIP11001075

PATIENT
  Age: 90 Year
  Sex: Female

DRUGS (5)
  1. ALENIA (BUDESONIDE, FORMOTEROL FUMARATE) [Concomitant]
  2. OS-CAL D (CALCIUM CARBONATE, COLECALCIFEROL) [Concomitant]
  3. SYNTHROID [Concomitant]
  4. ARADOIS H (HYDROCHLOROTHIAZIDE, LOSARTAN POTASSIUM) [Concomitant]
  5. ACTONEL [Suspect]
     Indication: OSTEOPOROSIS
     Dosage: 150 MG, ONCE A MONTH, ORAL
     Route: 048
     Dates: start: 20110305

REACTIONS (7)
  - BLOOD PRESSURE DECREASED [None]
  - ABASIA [None]
  - FEMUR FRACTURE [None]
  - JOINT INJURY [None]
  - HEAD INJURY [None]
  - FALL [None]
  - JOINT DISLOCATION [None]
